FAERS Safety Report 19312607 (Version 1)
Quarter: 2021Q2

REPORT INFORMATION
  Report Type: Spontaneous
  Country: US (occurrence: US)
  Receive Date: 20210526
  Receipt Date: 20210526
  Transmission Date: 20210717
  Serious: Yes (Death)
  Sender: FDA-Public Use
  Company Number: None

PATIENT
  Age: 80 Year
  Sex: Female

DRUGS (1)
  1. JADENU [Suspect]
     Active Substance: DEFERASIROX
     Route: 048
     Dates: start: 201807, end: 202104

REACTIONS (2)
  - Death [None]
  - Myelodysplastic syndrome [None]

NARRATIVE: CASE EVENT DATE: 20210426
